FAERS Safety Report 9310889 (Version 1)
Quarter: 2013Q1

REPORT INFORMATION
  Report Type: Spontaneous
  Country: GB (occurrence: None)
  Receive Date: 20130228
  Receipt Date: 20130228
  Transmission Date: 20140127
  Serious: Yes (Other)
  Sender: FDA-Public Use
  Company Number: AUR-APL-2013-01578

PATIENT
  Age: 78 Year
  Sex: Male
  Weight: 95.34 kg

DRUGS (1)
  1. METFORMIN (METFORMIN) [Suspect]
     Indication: TYPE 2 DIABETES MELLITUS
     Dates: start: 20121010

REACTIONS (4)
  - Anal pruritus [None]
  - Irritability [None]
  - Anal haemorrhage [None]
  - Discomfort [None]
